FAERS Safety Report 23333090 (Version 1)
Quarter: 2023Q4

REPORT INFORMATION
  Report Type: Spontaneous
  Country: US (occurrence: US)
  Receive Date: 20231222
  Receipt Date: 20231222
  Transmission Date: 20240109
  Serious: No
  Sender: FDA-Public Use
  Company Number: US-PFIZER INC-PV202300202408

PATIENT
  Age: 78 Year
  Sex: Male
  Weight: 72.3 kg

DRUGS (3)
  1. IBRANCE [Suspect]
     Active Substance: PALBOCICLIB
     Indication: Breast cancer male
     Dosage: TAKE 1 TABLET DAILY ON DAYS 1-21 OF 28 DAY CYCLE
     Route: 048
  2. LUPRON [Suspect]
     Active Substance: LEUPROLIDE ACETATE
     Indication: Breast cancer male
  3. LETROZOLE [Suspect]
     Active Substance: LETROZOLE
     Indication: Breast cancer male

REACTIONS (1)
  - Neoplasm progression [Unknown]
